FAERS Safety Report 4359196-2 (Version None)
Quarter: 2004Q2

REPORT INFORMATION
  Report Type: 
  Country: None (occurrence: None)
  Receive Date: 20040512
  Receipt Date: 20040506
  Transmission Date: 20050107
  Serious: Yes (Other)
  Sender: FDA-Public Use
  Company Number: 2004212025BE

PATIENT
  Sex: Female

DRUGS (1)
  1. CYTOTEC [Suspect]
     Indication: ABORTION INDUCED
     Dosage: ORAL
     Route: 048

REACTIONS (1)
  - RETAINED PRODUCTS OF CONCEPTION [None]
